FAERS Safety Report 8917610 (Version 4)
Quarter: 2013Q4

REPORT INFORMATION
  Report Type: Spontaneous
  Country: US (occurrence: US)
  Receive Date: 20121119
  Receipt Date: 20131122
  Transmission Date: 20140711
  Serious: Yes (Hospitalization, Other)
  Sender: FDA-Public Use
  Company Number: US-009507513-1211USA006857

PATIENT
  Sex: Female

DRUGS (8)
  1. FOSAMAX [Suspect]
     Indication: OSTEOPOROSIS
     Dosage: 10 MG, UNK
     Route: 048
     Dates: start: 199510, end: 200201
  2. FOSAMAX [Suspect]
     Dosage: 70 MG, QW
     Route: 048
     Dates: start: 200201, end: 201001
  3. VITAMINS (UNSPECIFIED) [Concomitant]
     Dosage: 1 DF, QD
     Dates: start: 2006
  4. OMEGA-3 MARINE TRIGLYCERIDES [Concomitant]
     Dosage: 1200 MG, QD
     Dates: start: 2006
  5. CALCIUM (UNSPECIFIED) [Concomitant]
     Dosage: 650 MG, QD
     Dates: start: 2006
  6. FOLIC ACID [Concomitant]
     Dosage: 1 MG, QD
     Dates: start: 2006
  7. PREDNISONE [Concomitant]
     Indication: PAIN
     Dosage: UNK, PRN
     Dates: start: 1990
  8. PREDNISONE [Concomitant]
     Indication: SWELLING

REACTIONS (13)
  - Intramedullary rod insertion [Unknown]
  - Femur fracture [Unknown]
  - Tibia fracture [Unknown]
  - Upper limb fracture [Unknown]
  - Lower limb fracture [Unknown]
  - Ankle fracture [Unknown]
  - Foot fracture [Unknown]
  - Impaired healing [Unknown]
  - Fall [Unknown]
  - Fall [Unknown]
  - Osteopenia [Unknown]
  - Foot fracture [Unknown]
  - Foot fracture [Unknown]
